FAERS Safety Report 5964336-5 (Version None)
Quarter: 2008Q4

REPORT INFORMATION
  Report Type: 
  Country: None (occurrence: None)
  Receive Date: 20081124
  Receipt Date: 20081113
  Transmission Date: 20090506
  Serious: Yes (Death)
  Sender: FDA-Public Use
  Company Number: US-BAXTER-2008BH012485

PATIENT
  Age: 9 Year
  Sex: Male

DRUGS (1)
  1. MORPHINE SULFATE [Suspect]
     Indication: PAIN
     Route: 042
     Dates: start: 20050508, end: 20050508

REACTIONS (3)
  - CARDIO-RESPIRATORY ARREST [None]
  - OVERDOSE [None]
  - PULMONARY EMBOLISM [None]
